FAERS Safety Report 10256044 (Version 1)
Quarter: 2014Q2

REPORT INFORMATION
  Report Type: Spontaneous
  Country: US (occurrence: US)
  Receive Date: 20140624
  Receipt Date: 20140624
  Transmission Date: 20141212
  Serious: No
  Sender: FDA-Public Use
  Company Number: US-TEVA-490467USA

PATIENT
  Age: 37 Year
  Sex: Female
  Weight: 72.64 kg

DRUGS (7)
  1. PLAN B ONE-STEP [Suspect]
     Indication: POST COITAL CONTRACEPTION
     Dosage: 1.5 MILLIGRAM DAILY;
     Route: 048
     Dates: start: 20140618, end: 20140618
  2. XANAX [Concomitant]
     Indication: INSOMNIA
     Route: 048
  3. BENADRYL [Concomitant]
     Indication: MULTIPLE ALLERGIES
     Route: 048
  4. THEOPHYLLINE [Concomitant]
     Indication: ASTHMA
  5. SINGULAIR [Concomitant]
     Indication: ASTHMA
  6. ALBUTEROL [Concomitant]
     Indication: ASTHMA
  7. SPIRIVA [Concomitant]
     Indication: ASTHMA

REACTIONS (2)
  - Vaginal discharge [Not Recovered/Not Resolved]
  - Micturition urgency [Not Recovered/Not Resolved]
